FAERS Safety Report 13937639 (Version 2)
Quarter: 2017Q3

REPORT INFORMATION
  Report Type: Spontaneous
  Country: JP (occurrence: JP)
  Receive Date: 20170905
  Receipt Date: 20170925
  Transmission Date: 20171127
  Serious: Yes (Hospitalization, Other)
  Sender: FDA-Public Use
  Company Number: JP-GILEAD-2017-0283314

PATIENT
  Age: 65 Year
  Sex: Female
  Weight: 58 kg

DRUGS (25)
  1. HARVONI [Suspect]
     Active Substance: LEDIPASVIR\SOFOSBUVIR
     Indication: HEPATITIS C
     Dosage: 1 DF, QD
     Route: 048
     Dates: start: 20151222, end: 20160315
  2. AMLODIPINE [Concomitant]
     Active Substance: AMLODIPINE BESYLATE
     Dosage: UNK, QD
     Route: 065
  3. GINGICAINE [Concomitant]
     Dosage: 20 G, AS INSTRUCTED BY PHYSICIAN
     Route: 065
  4. MERISLON [Concomitant]
     Active Substance: BETAHISTINE MESILATE
     Dosage: 1 DF, TID
     Route: 065
  5. XYLOCAINE [Concomitant]
     Active Substance: LIDOCAINE HYDROCHLORIDE
     Route: 065
  6. PRONES [Concomitant]
     Dosage: AS INSTRUCTED BY PHYSICIAN
     Route: 065
  7. URSODEOXYCHOLIC ACID [Concomitant]
     Active Substance: URSODIOL
     Dosage: UNK, TID
     Route: 065
  8. FUNGIZONE [Concomitant]
     Active Substance: AMPHOTERICIN B
     Dosage: AS INSTRUCED BY PHYSICIAN
     Route: 065
  9. XYLOCAINE [Concomitant]
     Active Substance: LIDOCAINE HYDROCHLORIDE
     Route: 058
  10. YUEKIN KEEP [Concomitant]
  11. RENIVACE [Concomitant]
     Active Substance: ENALAPRIL
     Dosage: 1 DF, QD
     Route: 065
  12. LENDORMIN [Concomitant]
     Active Substance: BROTIZOLAM
     Dosage: 2 DF, QD
     Route: 065
  13. ADETPHOS [Concomitant]
     Active Substance: ADENOSINE TRIPHOSPHATE
     Dosage: UNK, TID
     Route: 065
  14. OLOPATADINE HYDROCHLORIDE. [Concomitant]
     Active Substance: OLOPATADINE HYDROCHLORIDE
     Dosage: 1 DF, BID
     Route: 065
  15. PL [Concomitant]
     Active Substance: ACETAMINOPHEN\CAFFEINE\PROMETHAZINE\SALICYLAMIDE
     Dosage: 1 DF, TID
     Route: 065
  16. LEVOFLOXACIN. [Concomitant]
     Active Substance: LEVOFLOXACIN
     Dosage: 1 DF, AS INSTRUCTED BY PHYSICIAN
     Route: 065
  17. ENALAPRIL MALEATE. [Concomitant]
     Active Substance: ENALAPRIL MALEATE
     Dosage: UNK, QD
     Route: 065
  18. MOHRUS [Concomitant]
     Active Substance: KETOPROFEN
     Dosage: ONCE OR TWICE A DAY
     Route: 065
  19. WHITE PETROLATUM [Concomitant]
     Active Substance: PETROLATUM
     Route: 065
  20. ACHROMYCIN [Concomitant]
     Active Substance: TETRACYCLINE HYDROCHLORIDE
     Dosage: AS INSTRUCTED BY PHYSICIAN
     Route: 065
  21. AZUNOL                             /00317302/ [Concomitant]
     Dosage: AS INSTRUCTED BY PHYSICIAN
     Route: 065
  22. RIZE                               /00624801/ [Concomitant]
     Active Substance: CLOTIAZEPAM
     Dosage: 1 DF, TID
     Route: 065
  23. MERISLON [Concomitant]
     Active Substance: BETAHISTINE MESILATE
     Dosage: AS NEEDED
     Route: 065
  24. SOSEGON                            /00052101/ [Concomitant]
     Active Substance: PENTAZOCINE
     Route: 042
  25. ATARAX [Concomitant]
     Active Substance: HYDROXYZINE HYDROCHLORIDE
     Route: 042

REACTIONS (4)
  - Hepatocellular carcinoma [Recovered/Resolved]
  - Constipation [Unknown]
  - Insomnia [Unknown]
  - Anxiety [Unknown]

NARRATIVE: CASE EVENT DATE: 20160720
